FAERS Safety Report 8809514 (Version 1)
Quarter: 2012Q4

REPORT INFORMATION
  Report Type: 
  Country: US (occurrence: US)
  Receive Date: 20120926
  Receipt Date: 20120926
  Transmission Date: 20130627
  Serious: Yes (Death, Other)
  Sender: FDA-Public Use
  Company Number: US-ROCHE-1103622

PATIENT
  Sex: Male

DRUGS (9)
  1. AVASTIN [Suspect]
     Indication: GASTRIC CANCER
     Route: 065
  2. AVASTIN [Suspect]
     Indication: RECTOSIGMOID CANCER
  3. AVASTIN [Suspect]
     Indication: METASTASES TO LIVER
  4. HERCEPTIN [Suspect]
     Indication: GASTRIC CANCER
     Route: 065
  5. XELODA [Suspect]
     Indication: GASTRIC CANCER
     Route: 065
  6. TAXOTERE [Concomitant]
  7. OXALIPLATIN [Concomitant]
  8. FLUOROURACIL [Concomitant]
  9. IRINOTECAN [Concomitant]

REACTIONS (2)
  - Death [Fatal]
  - Disease progression [Unknown]
